FAERS Safety Report 16402701 (Version 4)
Quarter: 2019Q3

REPORT INFORMATION
  Report Type: Spontaneous
  Country: US (occurrence: US)
  Receive Date: 20190607
  Receipt Date: 20190704
  Transmission Date: 20191004
  Serious: Yes (Other)
  Sender: FDA-Public Use
  Company Number: US-JNJFOC-20190331107

PATIENT
  Age: 46 Year
  Sex: Female
  Weight: 90.8 kg

DRUGS (3)
  1. LEVOTHYROXINE. [Concomitant]
     Active Substance: LEVOTHYROXINE
     Indication: THYROID DISORDER
     Dosage: 50 ML
     Route: 065
  2. LISINOPRIL. [Concomitant]
     Active Substance: LISINOPRIL
     Indication: HYPERTENSION
     Dosage: 40 ML
     Route: 065
  3. NEUTROGENA HEALTHY SKIN ANTI-WRINKLE CREAM SPF 15 [Suspect]
     Active Substance: ENSULIZOLE\OCTINOXATE
     Indication: SKIN WRINKLING
     Dosage: DIME SIZED DROP
     Route: 061

REACTIONS (6)
  - Product lot number issue [Unknown]
  - Application site burn [Recovering/Resolving]
  - Visual impairment [Recovering/Resolving]
  - Application site ulcer [Recovering/Resolving]
  - Application site papules [Recovering/Resolving]
  - Blepharitis [Recovering/Resolving]

NARRATIVE: CASE EVENT DATE: 20190208
